FAERS Safety Report 5545218-X (Version None)
Quarter: 2007Q4

REPORT INFORMATION
  Report Type: 
  Country: None (occurrence: None)
  Receive Date: 20071121
  Receipt Date: 20070622
  Transmission Date: 20080405
  Serious: Yes (Hospitalization)
  Sender: FDA-Public Use
  Company Number: HQWYE773625JUN07

PATIENT
  Age: 85 Year
  Sex: Female

DRUGS (7)
  1. PREMARIN [Suspect]
     Dosage: APPLIED TOPICALLY TO VAGINAL AREA, TOPICAL
     Route: 061
     Dates: start: 19970101
  2. LEVONORDEFRIN (CORBADRINE, ) [Suspect]
  3. LIPITOR [Concomitant]
  4. DYAZIDE [Concomitant]
  5. COZAAR [Concomitant]
  6. FOSAMAX [Concomitant]
  7. VERELAN (VERAPAMIL HYDROCHLORIDE) [Concomitant]

REACTIONS (1)
  - MYOCARDIAL INFARCTION [None]
